FAERS Safety Report 23924263 (Version 1)
Quarter: 2024Q2

REPORT INFORMATION
  Report Type: Spontaneous
  Country: ZA (occurrence: None)
  Receive Date: 20240531
  Receipt Date: 20240531
  Transmission Date: 20240716
  Serious: Yes (Hospitalization)
  Sender: FDA-Public Use
  Company Number: 2024A124218

PATIENT
  Age: 68 Year
  Sex: Female

DRUGS (6)
  1. DAPAGLIFLOZIN PROPANEDIOL [Suspect]
     Active Substance: DAPAGLIFLOZIN PROPANEDIOL
     Indication: Diabetes mellitus
     Route: 048
  2. HUMALOG [Concomitant]
     Active Substance: INSULIN LISPRO
     Indication: Diabetes mellitus
  3. METFORMIN HYDROCHLORIDE [Concomitant]
     Active Substance: METFORMIN HYDROCHLORIDE
     Indication: Diabetes mellitus
  4. PENDINE [Concomitant]
     Indication: Hypertension
  5. PREGABALIN [Concomitant]
     Active Substance: PREGABALIN
     Indication: Epilepsy
  6. ECOTRIN [Concomitant]
     Active Substance: ASPIRIN
     Indication: Anticoagulant therapy

REACTIONS (2)
  - Lung disorder [Unknown]
  - Pain [Unknown]
